FAERS Safety Report 21977683 (Version 1)
Quarter: 2023Q1

REPORT INFORMATION
  Report Type: Spontaneous
  Country: US (occurrence: US)
  Receive Date: 20230210
  Receipt Date: 20230210
  Transmission Date: 20230417
  Serious: Yes (Other)
  Sender: FDA-Public Use
  Company Number: US-Hikma Pharmaceuticals USA Inc.-US-H14001-23-00314

PATIENT
  Age: 25 Year
  Sex: Male

DRUGS (5)
  1. PREDNISONE [Suspect]
     Active Substance: PREDNISONE
     Indication: Chronic lymphocytic inflammation with pontine perivascular enhancement responsive to steroids
     Dosage: COMPLETELY WEANED OFF
     Route: 065
  2. PREDNISONE [Suspect]
     Active Substance: PREDNISONE
     Dosage: ATTEMPT TO WEAN PREDNISONE LOWER THAN 30 MG DAILY
     Route: 065
  3. PREDNISONE [Suspect]
     Active Substance: PREDNISONE
     Dosage: ATTEMPT TO WEAN PREDNISONE LOWER THAN 30 MG DAILY
     Route: 065
  4. PREDNISONE [Suspect]
     Active Substance: PREDNISONE
     Dosage: PREDNISONE TAPER (10 MG WEEK)
     Route: 065
  5. PREDNISONE [Suspect]
     Active Substance: PREDNISONE
     Route: 065

REACTIONS (6)
  - Disease progression [Unknown]
  - Tremor [Unknown]
  - Abnormal weight gain [Recovering/Resolving]
  - Glucose tolerance impaired [Not Recovered/Not Resolved]
  - Bone density decreased [Unknown]
  - Anxiety [Unknown]
